FAERS Safety Report 15757009 (Version 1)
Quarter: 2018Q4

REPORT INFORMATION
  Report Type: Spontaneous
  Country: US (occurrence: US)
  Receive Date: 20181224
  Receipt Date: 20181224
  Transmission Date: 20190205
  Serious: Yes (Hospitalization, Other)
  Sender: FDA-Public Use
  Company Number: US-ACORDA-ACO_156206_2018

PATIENT
  Age: 43 Year
  Sex: Female
  Weight: 81.72 kg

DRUGS (7)
  1. GABAPENTIN. [Concomitant]
     Active Substance: GABAPENTIN
     Indication: PRODUCT USED FOR UNKNOWN INDICATION
     Route: 065
  2. AMITRIPTYLINE [Concomitant]
     Active Substance: AMITRIPTYLINE
     Indication: PRODUCT USED FOR UNKNOWN INDICATION
     Dosage: AT NIGHT
     Route: 065
  3. TECFIDERA [Suspect]
     Active Substance: DIMETHYL FUMARATE
     Indication: MULTIPLE SCLEROSIS
     Route: 065
     Dates: start: 20140121
  4. OXYBUTYNIN CHLORIDE. [Concomitant]
     Active Substance: OXYBUTYNIN CHLORIDE
     Indication: PRODUCT USED FOR UNKNOWN INDICATION
     Route: 065
  5. AMPYRA [Suspect]
     Active Substance: DALFAMPRIDINE
     Indication: PRODUCT USED FOR UNKNOWN INDICATION
     Route: 065
  6. TIZANIDINE. [Concomitant]
     Active Substance: TIZANIDINE
     Indication: PRODUCT USED FOR UNKNOWN INDICATION
     Route: 065
  7. KEPPRA [Concomitant]
     Active Substance: LEVETIRACETAM
     Indication: PRODUCT USED FOR UNKNOWN INDICATION
     Route: 065

REACTIONS (31)
  - Cerebral infarction [Unknown]
  - Cardiac failure congestive [Unknown]
  - Mitral valve disease [Unknown]
  - Coronary artery disease [Unknown]
  - Body mass index increased [Unknown]
  - Memory impairment [Not Recovered/Not Resolved]
  - Blood glucose abnormal [Unknown]
  - Cerebral ischaemia [Unknown]
  - Tricuspid valve disease [Unknown]
  - Neuritis [Unknown]
  - International normalised ratio abnormal [Unknown]
  - Headache [Unknown]
  - Atelectasis [Unknown]
  - Cardiomegaly [Unknown]
  - Pulmonary congestion [Unknown]
  - Blood creatinine abnormal [Unknown]
  - Blood chloride abnormal [Unknown]
  - Diplopia [Unknown]
  - Epilepsy [Unknown]
  - Pleural effusion [Unknown]
  - Obesity [Unknown]
  - Neuralgia [Unknown]
  - Multiple sclerosis [Unknown]
  - Paraparesis [Unknown]
  - Aortic valve disease [Unknown]
  - Pneumonia [Unknown]
  - Bladder dysfunction [Unknown]
  - Muscle spasms [Unknown]
  - Blood thyroid stimulating hormone decreased [Unknown]
  - Contraindicated product administered [Unknown]
  - Prothrombin time abnormal [Unknown]

NARRATIVE: CASE EVENT DATE: 20180420
